FAERS Safety Report 10280179 (Version 1)
Quarter: 2014Q3

REPORT INFORMATION
  Report Type: Spontaneous
  Country: GB (occurrence: GB)
  Receive Date: 20140707
  Receipt Date: 20140707
  Transmission Date: 20150326
  Serious: Yes (Other)
  Sender: FDA-Public Use
  Company Number: GB-TEVA-491031ISR

PATIENT
  Age: 9 Month
  Sex: Female
  Weight: 8.61 kg

DRUGS (2)
  1. GAVISCON INFANT [Concomitant]
  2. RANITIDINE [Suspect]
     Active Substance: RANITIDINE\RANITIDINE HYDROCHLORIDE
     Indication: REFLUX LARYNGITIS
     Dosage: 75MG/5ML
     Route: 048
     Dates: start: 20140606

REACTIONS (3)
  - Abdominal discomfort [Unknown]
  - Abdominal pain upper [Not Recovered/Not Resolved]
  - Abnormal behaviour [Unknown]

NARRATIVE: CASE EVENT DATE: 20140612
